FAERS Safety Report 19073619 (Version 1)
Quarter: 2021Q1

REPORT INFORMATION
  Report Type: Report from Study
  Country: US (occurrence: US)
  Receive Date: 20210330
  Receipt Date: 20210330
  Transmission Date: 20210420
  Serious: No
  Sender: FDA-Public Use
  Company Number: NVSC2021US071572

PATIENT
  Age: 34 Year
  Sex: Male

DRUGS (1)
  1. GILENYA [Suspect]
     Active Substance: FINGOLIMOD HYDROCHLORIDE
     Indication: RELAPSING-REMITTING MULTIPLE SCLEROSIS
     Dosage: 0.5 MG, QD
     Route: 048
     Dates: start: 20190805

REACTIONS (13)
  - Anxiety [Unknown]
  - Motion sickness [Unknown]
  - Somnolence [Unknown]
  - White blood cell count decreased [Unknown]
  - Vitamin D decreased [Unknown]
  - Balance disorder [Recovering/Resolving]
  - Monocyte count increased [Unknown]
  - Vitamin B1 decreased [Unknown]
  - Product dose omission issue [Unknown]
  - Pain [Unknown]
  - Feeling abnormal [Unknown]
  - Liver function test increased [Unknown]
  - Hypoaesthesia [Unknown]

NARRATIVE: CASE EVENT DATE: 20210312
